FAERS Safety Report 5676018-8 (Version None)
Quarter: 2008Q1

REPORT INFORMATION
  Report Type: 
  Country: None (occurrence: None)
  Receive Date: 20080318
  Receipt Date: 20080303
  Transmission Date: 20080703
  Serious: Yes (Hospitalization)
  Sender: FDA-Public Use
  Company Number: 1-15868942/MED-08053

PATIENT
  Age: 60 Year
  Sex: Female

DRUGS (1)
  1. ALLOPURINOL [Suspect]
     Indication: HYPERURICAEMIA
     Dosage: 100 MG TWICE DAILY, ORAL
     Route: 048

REACTIONS (7)
  - CHOLESTASIS [None]
  - HEPATIC FIBROSIS [None]
  - HEPATITIS [None]
  - HEPATOSPLENOMEGALY [None]
  - NEPHRITIS INTERSTITIAL [None]
  - RENAL FAILURE CHRONIC [None]
  - VASCULITIS [None]
